FAERS Safety Report 4931897-4 (Version None)
Quarter: 2006Q1

REPORT INFORMATION
  Report Type: 
  Country: None (occurrence: None)
  Receive Date: 20060303
  Receipt Date: 20051101
  Transmission Date: 20060701
  Serious: Yes (Hospitalization)
  Sender: FDA-Public Use
  Company Number: US-MERCK-0511USA00530

PATIENT
  Age: 44 Year
  Sex: Female
  Weight: 72 kg

DRUGS (14)
  1. VIOXX [Suspect]
     Indication: ARTHRITIS
     Route: 048
     Dates: start: 20020301, end: 20040909
  2. ACCUPRIL [Concomitant]
     Indication: HYPERTENSION
     Route: 065
     Dates: start: 20020614, end: 20051201
  3. ACCUPRIL [Concomitant]
     Indication: MYOCARDIAL INFARCTION
     Route: 065
     Dates: start: 20020614, end: 20051201
  4. LASIX [Concomitant]
     Indication: HYPERTENSION
     Route: 065
     Dates: start: 20031212, end: 20051201
  5. PRAVACHOL [Concomitant]
     Route: 065
     Dates: start: 20030107
  6. BEXTRA [Concomitant]
     Indication: ARTHRITIS
     Route: 065
     Dates: start: 20021111
  7. PHRENILIN [Concomitant]
     Indication: ARTHRITIS
     Route: 065
     Dates: start: 20021111
  8. LORTAB [Concomitant]
     Indication: ARTHRALGIA
     Route: 065
     Dates: start: 20030225
  9. LORTAB [Concomitant]
     Indication: BACK PAIN
     Route: 065
     Dates: start: 20030225
  10. CORTISONE [Concomitant]
     Indication: ARTHRALGIA
     Route: 065
     Dates: end: 20020101
  11. CORTISONE [Concomitant]
     Indication: BACK PAIN
     Route: 065
     Dates: end: 20020101
  12. KLONOPIN [Concomitant]
     Indication: RESTLESS LEGS SYNDROME
     Route: 065
  13. PAXIL [Concomitant]
     Indication: ANXIETY DISORDER
     Route: 065
     Dates: start: 20020101
  14. PAXIL [Concomitant]
     Indication: DEPRESSION
     Route: 065
     Dates: start: 20020101

REACTIONS (19)
  - ABDOMINAL PAIN [None]
  - ABDOMINAL PAIN UPPER [None]
  - ACUTE MYOCARDIAL INFARCTION [None]
  - ANXIETY DISORDER [None]
  - CARDIAC FAILURE CONGESTIVE [None]
  - CHEST DISCOMFORT [None]
  - CHEST PAIN [None]
  - DEPRESSION [None]
  - DIARRHOEA [None]
  - DRUG HYPERSENSITIVITY [None]
  - DYSPNOEA [None]
  - HYPERTENSION [None]
  - INFLUENZA [None]
  - MYOCARDIAL INFARCTION [None]
  - NAUSEA [None]
  - RASH [None]
  - RASH GENERALISED [None]
  - RESTLESS LEGS SYNDROME [None]
  - VOMITING [None]
